FAERS Safety Report 14560531 (Version 1)
Quarter: 2018Q1

REPORT INFORMATION
  Report Type: Report from Study
  Country: US (occurrence: US)
  Receive Date: 20180222
  Receipt Date: 20180222
  Transmission Date: 20180509
  Serious: Yes (Hospitalization, Other)
  Sender: FDA-Public Use
  Company Number: US-GILEAD-2018-0321640

PATIENT
  Age: 44 Year
  Sex: Male

DRUGS (1)
  1. AMBRISENTAN [Suspect]
     Active Substance: AMBRISENTAN
     Indication: PULMONARY ARTERIAL HYPERTENSION
     Dosage: 10 MG, QD
     Route: 048
     Dates: start: 20081211

REACTIONS (5)
  - Dyspnoea [Unknown]
  - Alanine aminotransferase increased [Unknown]
  - Treatment noncompliance [Unknown]
  - Aspartate aminotransferase increased [Unknown]
  - Pulmonary arterial hypertension [Unknown]
